FAERS Safety Report 12949222 (Version 1)
Quarter: 2016Q4

REPORT INFORMATION
  Report Type: Spontaneous
  Country: US (occurrence: US)
  Receive Date: 20161116
  Receipt Date: 20161116
  Transmission Date: 20170207
  Serious: Yes (Other)
  Sender: FDA-Public Use
  Company Number: US-OTSUKA-2016_026610

PATIENT

DRUGS (1)
  1. SAMSCA [Suspect]
     Active Substance: TOLVAPTAN
     Indication: BLOOD SODIUM DECREASED
     Dosage: 15 MG, SINGLE
     Route: 065
     Dates: start: 201610, end: 201610

REACTIONS (3)
  - Rapid correction of hyponatraemia [Recovering/Resolving]
  - Osmotic demyelination syndrome [Recovering/Resolving]
  - Cerebral disorder [Recovering/Resolving]

NARRATIVE: CASE EVENT DATE: 201610
